FAERS Safety Report 22594802 (Version 1)
Quarter: 2023Q2

REPORT INFORMATION
  Report Type: Spontaneous
  Country: US (occurrence: None)
  Receive Date: 20230612
  Receipt Date: 20230612
  Transmission Date: 20230722
  Serious: Yes (Other)
  Sender: FDA-Public Use
  Company Number: None

PATIENT
  Age: 17 Year
  Sex: Female
  Weight: 74.25 kg

DRUGS (4)
  1. BUPROPION HYDROCHLORIDE XL [Suspect]
     Active Substance: BUPROPION HYDROCHLORIDE
     Indication: Obsessive-compulsive disorder
     Dosage: OTHER QUANTITY : 60 TABLET(S);?
     Route: 048
     Dates: start: 20230428, end: 20230501
  2. SERTRALINE [Concomitant]
  3. benadryl [Concomitant]
  4. BUPROPION HYDROCHLORIDE XL [Suspect]
     Active Substance: BUPROPION HYDROCHLORIDE
     Indication: Attention deficit hyperactivity disorder

REACTIONS (5)
  - Documented hypersensitivity to administered product [None]
  - Urticaria [None]
  - Rash [None]
  - Throat irritation [None]
  - Eye pruritus [None]

NARRATIVE: CASE EVENT DATE: 20230502
